FAERS Safety Report 5588294-0 (Version None)
Quarter: 2008Q1

REPORT INFORMATION
  Report Type: 
  Country: None (occurrence: None)
  Receive Date: 20080111
  Receipt Date: 20080107
  Transmission Date: 20080703
  Serious: Yes (Death, Life-Threatening, Hospitalization)
  Sender: FDA-Public Use
  Company Number: JP-BAYER-200710980BYL

PATIENT
  Age: 77 Year
  Sex: Male

DRUGS (7)
  1. ASPIRIN [Suspect]
     Indication: TRANSIENT ISCHAEMIC ATTACK
     Dosage: TOTAL DAILY DOSE: 100 MG  UNIT DOSE: 100 MG
     Route: 048
     Dates: start: 20071105, end: 20071203
  2. PLAVIX [Suspect]
     Indication: CAROTID ARTERY STENOSIS
     Dosage: TOTAL DAILY DOSE: 75 MG  UNIT DOSE: 75 MG
     Route: 048
     Dates: start: 20071105, end: 20071203
  3. SUNRYTHM [Suspect]
     Indication: ATRIAL FIBRILLATION
     Dosage: TOTAL DAILY DOSE: 100 MG  UNIT DOSE: 50 MG
     Route: 048
     Dates: start: 20071105, end: 20071129
  4. WARFARIN SODIUM [Suspect]
     Indication: ATRIAL FIBRILLATION
     Dosage: TOTAL DAILY DOSE: 2 MG  UNIT DOSE: 1 MG
     Route: 048
     Dates: start: 20071105, end: 20071129
  5. ARTIST [Suspect]
     Indication: MYOCARDIAL INFARCTION
     Dosage: TOTAL DAILY DOSE: 5 MG  UNIT DOSE: 5 MG
     Route: 048
     Dates: start: 20071105, end: 20071129
  6. OMEPRAL [Suspect]
     Indication: GASTRIC ULCER HAEMORRHAGE
     Dosage: TOTAL DAILY DOSE: 20 MG  UNIT DOSE: 20 MG
     Route: 048
     Dates: start: 20071009, end: 20071203
  7. LOXONIN [Suspect]
     Indication: PYREXIA
     Route: 048
     Dates: start: 20071130, end: 20071203

REACTIONS (8)
  - DIARRHOEA [None]
  - DISORDER OF GLOBE [None]
  - ERYTHEMA MULTIFORME [None]
  - GASTROINTESTINAL MUCOSAL DISORDER [None]
  - LOSS OF CONSCIOUSNESS [None]
  - PYREXIA [None]
  - SEPTIC SHOCK [None]
  - TOXIC EPIDERMAL NECROLYSIS [None]
